FAERS Safety Report 8910950 (Version 1)
Quarter: 2012Q4

REPORT INFORMATION
  Report Type: Spontaneous
  Country: FR (occurrence: None)
  Receive Date: 20121113
  Receipt Date: 20121113
  Transmission Date: 20130627
  Serious: Yes (Hospitalization)
  Sender: FDA-Public Use
  Company Number: B0842791A

PATIENT
  Age: 54 Year
  Sex: Male

DRUGS (6)
  1. AMOXICILLIN [Suspect]
  2. LAMOTRIGINE [Suspect]
  3. PREDNISOLONE [Concomitant]
  4. FENTANYL [Concomitant]
  5. CLONAZEPAM [Concomitant]
  6. PAROXETINE HYDROCHLORIDE [Concomitant]

REACTIONS (8)
  - Toxic epidermal necrolysis [None]
  - Stupor [None]
  - Respiratory failure [None]
  - Stevens-Johnson syndrome [None]
  - Multi-organ failure [None]
  - Septic shock [None]
  - Dry eye [None]
  - Skin depigmentation [None]
